FAERS Safety Report 18935019 (Version 8)
Quarter: 2023Q1

REPORT INFORMATION
  Report Type: Report from Study
  Country: CN (occurrence: None)
  Receive Date: 20210224
  Receipt Date: 20230301
  Transmission Date: 20230417
  Serious: Yes (Hospitalization)
  Sender: FDA-Public Use
  Company Number: CN-ROCHE-2773470

PATIENT
  Age: 53 Year
  Sex: Male
  Weight: 55.5 kg

DRUGS (22)
  1. PACLITAXEL [Suspect]
     Active Substance: PACLITAXEL
     Indication: Oesophageal squamous cell carcinoma metastatic
     Dosage: DATE OF MOST RECENT DOSE (281.2 MG) OF PACLITAXEL PRIOR TO AE: 30/JAN/2021
     Route: 042
     Dates: start: 20210130
  2. CISPLATIN [Suspect]
     Active Substance: CISPLATIN
     Indication: Oesophageal squamous cell carcinoma metastatic
     Dosage: DATE OF MOST RECENT DOSE OF CISPLATIN (100 MG) PRIOR TO SAE: 30/JAN/2021
     Route: 042
     Dates: start: 20210130
  3. TIRAGOLUMAB [Suspect]
     Active Substance: TIRAGOLUMAB
     Indication: Oesophageal squamous cell carcinoma metastatic
     Dosage: DATE OF MOST RECENT DOSE OF TIRAGOLUMAB PRIOR TO AE: 30/JAN/2021
     Route: 042
     Dates: start: 20210130
  4. ATEZOLIZUMAB [Suspect]
     Active Substance: ATEZOLIZUMAB
     Indication: Oesophageal squamous cell carcinoma metastatic
     Dosage: DATE OF MOST RECENT DOSE OF ATEZOLIZUMAB PRIOR TO AE: 30/JAN/2021
     Route: 041
     Dates: start: 20210130
  5. LIDOCAINE HYDROCHLORIDE [Concomitant]
     Active Substance: LIDOCAINE HYDROCHLORIDE
     Indication: Local anaesthesia
     Dates: start: 20210130, end: 20210130
  6. HEPARIN SODIUM [Concomitant]
     Active Substance: HEPARIN SODIUM
     Dates: start: 20210130, end: 20210130
  7. AZASETRON HYDROCHLORIDE;SODIUM CHLORIDE [Concomitant]
     Indication: Prophylaxis
     Dates: start: 20210130, end: 20210130
  8. FAMOTIDINE [Concomitant]
     Active Substance: FAMOTIDINE
     Indication: Prophylaxis
     Dates: start: 20210130, end: 20210130
  9. DEXAMETHASONE SODIUM PHOSPHATE [Concomitant]
     Active Substance: DEXAMETHASONE SODIUM PHOSPHATE
     Indication: Prophylaxis
     Route: 042
     Dates: start: 20210130, end: 20210130
  10. FUROSEMIDE [Concomitant]
     Active Substance: FUROSEMIDE
     Dates: start: 20210130, end: 20210130
  11. INDOMETHACIN [Concomitant]
     Active Substance: INDOMETHACIN
     Indication: Pyrexia
     Dates: start: 20210131, end: 20210131
  12. MECAPEGFILGRASTIM [Concomitant]
     Active Substance: MECAPEGFILGRASTIM
     Indication: Prophylaxis
     Dates: start: 20210201, end: 20210201
  13. IBUPROFEN [Concomitant]
     Active Substance: IBUPROFEN
     Indication: Pyrexia
     Dates: start: 20210211, end: 20210212
  14. SODIUM POTASSIUM MAGNESIUM CALCIUM AND GLUCOSE [Concomitant]
     Dates: start: 20210217, end: 20210217
  15. VITAMIN B6 [Concomitant]
     Active Substance: PYRIDOXINE HYDROCHLORIDE
     Dates: start: 20210217, end: 20210304
  16. VITAMIN C [Concomitant]
     Active Substance: ASCORBIC ACID
     Dates: start: 20210217, end: 20210304
  17. POTASSIUM CHLORIDE [Concomitant]
     Active Substance: POTASSIUM CHLORIDE
     Dates: start: 20210217, end: 20210220
  18. TOBRAMYCIN AND DEXAMETHASONE [Concomitant]
     Active Substance: DEXAMETHASONE\TOBRAMYCIN
     Indication: Conjunctivitis
     Route: 047
     Dates: start: 20210220, end: 20210220
  19. CALCIUM CARBONATE [Concomitant]
     Active Substance: CALCIUM CARBONATE
     Dates: start: 20210223, end: 20210315
  20. LACTULOSE [Concomitant]
     Active Substance: LACTULOSE
     Indication: Constipation
     Dates: start: 20210228, end: 20210228
  21. AMINO ACIDS [Concomitant]
     Active Substance: AMINO ACIDS
     Dates: start: 20210217, end: 20210223
  22. CARBOHYDRATES\ELECTROLYTES NOS [Concomitant]
     Active Substance: CARBOHYDRATES\ELECTROLYTES NOS
     Dates: start: 20210217, end: 20210222

REACTIONS (1)
  - Stomatitis [Recovered/Resolved]

NARRATIVE: CASE EVENT DATE: 20210213
